FAERS Safety Report 20190964 (Version 2)
Quarter: 2023Q1

REPORT INFORMATION
  Report Type: Spontaneous
  Country: CA (occurrence: CA)
  Receive Date: 20211216
  Receipt Date: 20230116
  Transmission Date: 20230417
  Serious: Yes (Other)
  Sender: FDA-Public Use
  Company Number: CA-SAMSUNG BIOEPIS-SB-2021-28853

PATIENT
  Age: 44 Year
  Sex: Female
  Weight: 62 kg

DRUGS (8)
  1. INFLIXIMAB [Suspect]
     Active Substance: INFLIXIMAB
     Indication: Rheumatoid arthritis
     Route: 041
  2. ACETAMINOPHEN [Concomitant]
     Active Substance: ACETAMINOPHEN
     Indication: Premedication
     Route: 065
  3. ELAGOLIX SODIUM [Concomitant]
     Active Substance: ELAGOLIX SODIUM
     Indication: Product used for unknown indication
     Dosage: UNKNOWN
     Route: 065
  4. ELAGOLIX SODIUM [Concomitant]
     Active Substance: ELAGOLIX SODIUM
     Route: 065
  5. FOLIC ACID [Concomitant]
     Active Substance: FOLIC ACID
     Indication: Product used for unknown indication
     Dosage: UNKNOWN
     Route: 065
  6. FOLIC ACID [Concomitant]
     Active Substance: FOLIC ACID
     Route: 065
  7. METHOTREXATE [Concomitant]
     Active Substance: METHOTREXATE
     Indication: Product used for unknown indication
     Route: 065
  8. PREDNISONE [Concomitant]
     Active Substance: PREDNISONE
     Indication: Product used for unknown indication
     Route: 065

REACTIONS (16)
  - Back pain [Not Recovered/Not Resolved]
  - Blood pressure fluctuation [Not Recovered/Not Resolved]
  - Breast tenderness [Not Recovered/Not Resolved]
  - Bronchospasm [Not Recovered/Not Resolved]
  - Chest discomfort [Not Recovered/Not Resolved]
  - Chest pain [Not Recovered/Not Resolved]
  - Cough [Not Recovered/Not Resolved]
  - Dyspnoea [Not Recovered/Not Resolved]
  - Headache [Not Recovered/Not Resolved]
  - Heart rate increased [Not Recovered/Not Resolved]
  - Infusion related reaction [Recovered/Resolved]
  - Lymphadenopathy [Not Recovered/Not Resolved]
  - Nausea [Not Recovered/Not Resolved]
  - Ovarian cyst [Not Recovered/Not Resolved]
  - COVID-19 [Not Recovered/Not Resolved]
  - Malaise [Not Recovered/Not Resolved]
